FAERS Safety Report 5973408-0 (Version None)
Quarter: 2008Q4

REPORT INFORMATION
  Report Type: 
  Country: None (occurrence: None)
  Receive Date: 20081125
  Receipt Date: 20081105
  Transmission Date: 20090506
  Serious: Yes (Other)
  Sender: FDA-Public Use
  Company Number: 081118-0000924

PATIENT
  Age: 3 Month
  Sex: Male

DRUGS (5)
  1. ELSPAR [Suspect]
     Indication: ACUTE LYMPHOCYTIC LEUKAEMIA
  2. VINCRISTINE [Concomitant]
  3. DAUNORUBICIN [Concomitant]
  4. CYCLOPHOSPHAMIDE [Concomitant]
  5. PREDNISONE TAB [Concomitant]

REACTIONS (3)
  - BACTERIAL SEPSIS [None]
  - PANCYTOPENIA [None]
  - PYREXIA [None]
